FAERS Safety Report 7689513-7 (Version None)
Quarter: 2011Q3

REPORT INFORMATION
  Report Type: 
  Country: None (occurrence: None)
  Receive Date: 20110817
  Receipt Date: 20110614
  Transmission Date: 20111222
  Serious: No
  Sender: FDA-Public Use
  Company Number: US-TYCO HEALTHCARE/MALLINCKRODT-T201101237

PATIENT
  Sex: Female
  Weight: 75.737 kg

DRUGS (22)
  1. CRESTOR [Concomitant]
     Dosage: 5 MG, QD
  2. VENTOLIN [Concomitant]
     Indication: HYPERSENSITIVITY
     Dosage: 2 PUFFS PRN
  3. MOBIC [Concomitant]
     Dosage: 15 MG, QD
  4. ALLEGRA [Concomitant]
     Dosage: 180 UNK, QD
  5. SKELAXIN [Concomitant]
     Indication: MUSCLE RELAXANT THERAPY
     Dosage: 800 MG, 1/2 IN AM, 1/2 IN PM
  6. CENTRUM SILVER                     /01292501/ [Concomitant]
     Dosage: 1 QD
  7. TRAZODONE HCL [Concomitant]
     Dosage: 150 MG AT NIGHT
  8. LASIX [Concomitant]
     Indication: SWELLING
     Dosage: 20 MG, QD
  9. VERAMYST [Concomitant]
     Dosage: 2 SPRAYS PRN
  10. AMBIEN [Concomitant]
     Dosage: 10 MG AT NIGHT
  11. ADVAIR DISKUS 100/50 [Concomitant]
     Dosage: 250-50, 1 PUFF Q12
  12. VITAMIN C                          /00008001/ [Concomitant]
     Dosage: 1000 MG, QD
  13. SINGULAIR [Concomitant]
     Dosage: 10 MG AT NIGHT
  14. VISTARIL                           /00058402/ [Concomitant]
     Dosage: 25 MG, UNK
  15. TRICOR [Concomitant]
     Dosage: 160 MG, UNK
  16. LANOXIN [Concomitant]
     Indication: HEART RATE IRREGULAR
     Dosage: 0.25 UNK, UNK
  17. OMEPRAZOLE [Concomitant]
     Dosage: 40 MG, QD
  18. LYRICA [Concomitant]
     Dosage: 150 MG, BID
  19. FENTANYL-100 [Suspect]
     Indication: BACK PAIN
     Dosage: 25 UG/HR, Q 72 HOUR
     Route: 062
     Dates: start: 20110301
  20. POTASSIUM [Concomitant]
     Indication: SWELLING
     Dosage: 10 MEQ, QD
  21. MECLIZINE                          /00072801/ [Concomitant]
     Indication: DIZZINESS
     Dosage: 25 MG QID PRN
  22. ATENOLOL [Concomitant]
     Dosage: 50 MG AT NIGHT (TWO TABS AT NIGHT)

REACTIONS (3)
  - BALANCE DISORDER [None]
  - DIZZINESS [None]
  - NAUSEA [None]
